FAERS Safety Report 10239656 (Version 1)
Quarter: 2014Q2

REPORT INFORMATION
  Report Type: Spontaneous
  Country: ES (occurrence: None)
  Receive Date: 20140612
  Receipt Date: 20140612
  Transmission Date: 20141212
  Serious: Yes (Life-Threatening, Hospitalization)
  Sender: FDA-Public Use
  Company Number: AUR-APL-2014-06281

PATIENT
  Age: 88 Year
  Sex: Male

DRUGS (6)
  1. DOXAZOSIN [Suspect]
     Indication: HYPERTENSION
     Route: 048
     Dates: end: 20130830
  2. TORASEMIDE (TORASEMIDE) [Suspect]
     Indication: HYPERTENSION
     Route: 048
     Dates: start: 20130529, end: 20130830
  3. OPENVAS (SILDENAFIL CITRATE) [Suspect]
     Indication: HYPERTENSION
     Route: 048
     Dates: end: 20130830
  4. ZYLORIC (ALLOPURINOL) [Concomitant]
  5. OXIS TURBUH (FORMOTEROL FUMARATE) [Concomitant]
  6. INSULATARD (INSULIN HUMAN INJECTION, ISOPHANE) [Concomitant]

REACTIONS (4)
  - Renal failure acute [None]
  - Hyperkalaemia [None]
  - Drug interaction [None]
  - Apparent life threatening event [None]
